FAERS Safety Report 25937058 (Version 1)
Quarter: 2025Q4

REPORT INFORMATION
  Report Type: Spontaneous
  Country: JP (occurrence: JP)
  Receive Date: 20251017
  Receipt Date: 20251017
  Transmission Date: 20260117
  Serious: Yes (Death, Hospitalization, Other)
  Sender: MERCK SHARP & DOHME LLC
  Company Number: JP-009507513-2340691

PATIENT
  Age: 93 Year
  Sex: Male
  Weight: 50.9 kg

DRUGS (1)
  1. SITAGLIPTIN PHOSPHATE [Suspect]
     Active Substance: SITAGLIPTIN PHOSPHATE
     Indication: Type 2 diabetes mellitus
     Route: 048
     Dates: start: 2019, end: 202305

REACTIONS (6)
  - Pemphigoid [Fatal]
  - Blood pressure decreased [Fatal]
  - Depressed level of consciousness [Fatal]
  - Oxygen saturation decreased [Fatal]
  - Cerebral infarction [Fatal]
  - Chronic kidney disease [Unknown]

NARRATIVE: CASE EVENT DATE: 20250101
